FAERS Safety Report 10539584 (Version 1)
Quarter: 2014Q4

REPORT INFORMATION
  Report Type: Spontaneous
  Country: None (occurrence: US)
  Receive Date: 20141023
  Receipt Date: 20141023
  Transmission Date: 20150529
  Serious: No
  Sender: FDA-Public Use
  Company Number: US-ALLERGAN-1402823US

PATIENT
  Age: 70 Year
  Sex: Female

DRUGS (3)
  1. VITAMINS                           /00067501/ [Concomitant]
     Indication: SUPPLEMENTATION THERAPY
     Dosage: UNK
  2. COMBIGAN[R] [Suspect]
     Active Substance: BRIMONIDINE TARTRATE\TIMOLOL MALEATE
     Indication: GLAUCOMA
     Dosage: 2 GTT, BID
     Route: 047
     Dates: start: 20140202
  3. LATANAPROST/TIMOLOL [Concomitant]
     Indication: GLAUCOMA
     Dosage: Q2 GTT, UNK

REACTIONS (2)
  - Blindness transient [Recovered/Resolved]
  - Hypoaesthesia [Unknown]
